FAERS Safety Report 15207707 (Version 1)
Quarter: 2018Q3

REPORT INFORMATION
  Report Type: Spontaneous
  Country: US (occurrence: US)
  Receive Date: 20180727
  Receipt Date: 20180727
  Transmission Date: 20181010
  Serious: No
  Sender: FDA-Public Use
  Company Number: US-ALLERGAN-1734973US

PATIENT
  Sex: Male

DRUGS (3)
  1. ANDRODERM [Suspect]
     Active Substance: TESTOSTERONE
     Indication: ANDROGEN DEFICIENCY
     Dosage: 4 MG, QD
     Route: 062
     Dates: start: 2017
  2. ANDRODERM [Suspect]
     Active Substance: TESTOSTERONE
     Dosage: 4 MG, QD
     Route: 062
     Dates: start: 2017
  3. ANDRODERM [Suspect]
     Active Substance: TESTOSTERONE
     Dosage: 4 MG, QD
     Route: 062

REACTIONS (9)
  - Application site irritation [Unknown]
  - Product quality issue [Unknown]
  - Headache [Recovered/Resolved]
  - Incorrect drug administration duration [Unknown]
  - Application site pruritus [Not Recovered/Not Resolved]
  - Accidental exposure to product [Unknown]
  - Skin irritation [Not Recovered/Not Resolved]
  - Hair growth abnormal [Unknown]
  - Application site erythema [Recovered/Resolved]

NARRATIVE: CASE EVENT DATE: 2017
